FAERS Safety Report 5216383-9 (Version None)
Quarter: 2006Q4

REPORT INFORMATION
  Report Type: 
  Country: None (occurrence: None)
  Receive Date: 20061124
  Receipt Date: 20060815
  Transmission Date: 20070319
  Serious: Yes (Hospitalization, Disabling, Other)
  Sender: FDA-Public Use
  Company Number: WAES 0608USA03957

PATIENT
  Age: 38 Year
  Sex: Male
  Weight: 112.0385 kg

DRUGS (3)
  1. VYTORIN [Suspect]
     Dosage: 10-40 MG/DAILY/PO
     Route: 048
  2. FELDENE [Concomitant]
  3. MIRAPEX [Concomitant]

REACTIONS (1)
  - RHABDOMYOLYSIS [None]
